FAERS Safety Report 4400930-0 (Version None)
Quarter: 2004Q3

REPORT INFORMATION
  Report Type: 
  Country: None (occurrence: None)
  Receive Date: 20040907
  Receipt Date: 20030813
  Transmission Date: 20050211
  Serious: No
  Sender: FDA-Public Use
  Company Number: US-BRISTOL-MYERS SQUIBB COMPANY-12355764

PATIENT
  Age: 84 Year
  Sex: Female
  Weight: 47 kg

DRUGS (8)
  1. COUMADIN [Suspect]
     Indication: CEREBROVASCULAR ACCIDENT
     Dosage: DOSE VALUE:  3 MG EVERY DAY BUT WEDNESDAYS, WHICH WARFARIN WAS HELD.
     Route: 048
     Dates: start: 20030101
  2. BENICAR [Concomitant]
  3. CARDIZEM [Concomitant]
  4. ZOCOR [Concomitant]
  5. ASPIRIN [Concomitant]
  6. COLACE [Concomitant]
  7. CELEBREX [Concomitant]
  8. DARVOCET [Concomitant]

REACTIONS (2)
  - AGGRESSION [None]
  - PERSONALITY CHANGE [None]
